FAERS Safety Report 10985137 (Version 1)
Quarter: 2015Q2

REPORT INFORMATION
  Report Type: Spontaneous
  Country: JP (occurrence: JP)
  Receive Date: 20150404
  Receipt Date: 20150404
  Transmission Date: 20150821
  Serious: Yes (Other)
  Sender: FDA-Public Use
  Company Number: JP-ACCORD-029743

PATIENT
  Age: 27 Year
  Sex: Female

DRUGS (1)
  1. AMITRIPTYLINE [Suspect]
     Active Substance: AMITRIPTYLINE
     Indication: CYCLIC VOMITING SYNDROME
     Dosage: STARTED 20 MG/DAY. DISCONTINUED AT 5 WEEK OF GESTATION. AT 13 WEEK OF GESTATION RESTART 20 MG/DAY.

REACTIONS (2)
  - Exposure during pregnancy [Unknown]
  - Long QT syndrome [Unknown]
